FAERS Safety Report 10164106 (Version 2)
Quarter: 2014Q2

REPORT INFORMATION
  Report Type: Spontaneous
  Country: US (occurrence: US)
  Receive Date: 20140510
  Receipt Date: 20140510
  Transmission Date: 20141212
  Serious: No
  Sender: FDA-Public Use
  Company Number: US-BRISTOL-MYERS SQUIBB COMPANY-19938778

PATIENT
  Age: 67 Year
  Sex: Female
  Weight: 124.71 kg

DRUGS (7)
  1. BYDUREON  2MG SUSPENSION [Suspect]
     Indication: TYPE 2 DIABETES MELLITUS
     Route: 058
  2. BYETTA [Suspect]
     Indication: TYPE 2 DIABETES MELLITUS
     Route: 058
  3. METFORMIN HCL [Suspect]
     Route: 048
  4. GLYBURIDE [Suspect]
     Route: 048
  5. FISH OIL [Concomitant]
  6. HYZAAR [Concomitant]
     Dosage: 1DF=1TAB
     Route: 048
  7. TENORMIN [Concomitant]
     Indication: PALPITATIONS
     Route: 048

REACTIONS (8)
  - Vulvovaginal pruritus [Unknown]
  - Blood glucose increased [Recovering/Resolving]
  - Glycosylated haemoglobin increased [Unknown]
  - Blood triglycerides increased [Unknown]
  - Weight decreased [Unknown]
  - Weight increased [Recovered/Resolved]
  - Decreased appetite [Recovered/Resolved]
  - Injection site pain [Recovered/Resolved]
